FAERS Safety Report 7396159-7 (Version None)
Quarter: 2011Q2

REPORT INFORMATION
  Report Type: 
  Country: None (occurrence: None)
  Receive Date: 20110406
  Receipt Date: 20110322
  Transmission Date: 20111010
  Serious: Yes (Hospitalization)
  Sender: FDA-Public Use
  Company Number: JP-AMGEN-US402096

PATIENT
  Age: 67 Year
  Sex: Male

DRUGS (15)
  1. RIBALL [Concomitant]
     Dosage: 100 MG, 2X/DAY
     Route: 048
     Dates: start: 20090728, end: 20091028
  2. ARTZ [Concomitant]
     Indication: ARTHRALGIA
     Dosage: 2 DF, 1X/DAY
     Dates: start: 20100226
  3. CHLORHEXIDINE HYDROCHLORIDE [Concomitant]
     Indication: LIP ULCERATION
     Dosage: UNK
     Dates: start: 20100119
  4. RHEUMATREX [Suspect]
     Dosage: 6.0 MG, 1X/WK
     Route: 048
     Dates: start: 20101017
  5. CELESTAMINE TAB [Concomitant]
     Indication: URTICARIA
     Dosage: UNK
     Route: 048
     Dates: start: 20091109, end: 20091116
  6. GASTER D [Concomitant]
     Indication: GASTRITIS
     Dosage: 10 MG, 1X/DAY
     Route: 048
     Dates: start: 20100316
  7. DIPHENHYDRAMINE HCL [Concomitant]
     Indication: LIP ULCERATION
     Dosage: UNK
     Dates: start: 20100119
  8. URINORM [Concomitant]
     Indication: GOUT
     Dosage: 25 MG, 1X/DAY
     Route: 048
     Dates: start: 20091221
  9. RIBALL [Concomitant]
     Indication: ARTHRALGIA
     Dosage: 200 MG, QD
     Route: 048
  10. PREDONINE                          /00016201/ [Concomitant]
     Indication: RHEUMATOID ARTHRITIS
     Dosage: 5 MG, 1X/DAY
     Route: 048
     Dates: start: 20100316, end: 20100928
  11. ENBREL [Suspect]
     Indication: RHEUMATOID ARTHRITIS
     Dosage: UNSPECIFIED
     Route: 058
     Dates: start: 20090731, end: 20100306
  12. ENBREL [Suspect]
     Dosage: UNK
     Route: 058
     Dates: start: 20100928
  13. SELTOUCH [Concomitant]
     Indication: ARTHRALGIA
     Dosage: 2 DF, 2X/DAY
     Dates: start: 20090728, end: 20090828
  14. ALENDRONIC ACID [Concomitant]
     Indication: OSTEOPOROSIS
     Dosage: 35 MG, WEEKLY
     Route: 048
     Dates: start: 20090728
  15. MOBIC [Concomitant]
     Route: 048

REACTIONS (5)
  - MOUTH ULCERATION [None]
  - EPISTAXIS [None]
  - ANAEMIA [None]
  - INTERSTITIAL LUNG DISEASE [None]
  - PANCYTOPENIA [None]
